FAERS Safety Report 13869206 (Version 1)
Quarter: 2017Q3

REPORT INFORMATION
  Report Type: Spontaneous
  Country: IT (occurrence: IT)
  Receive Date: 20170815
  Receipt Date: 20170815
  Transmission Date: 20171127
  Serious: Yes (Death, Other)
  Sender: FDA-Public Use
  Company Number: IT-TEVA-397142ISR

PATIENT
  Age: 80 Year
  Sex: Male

DRUGS (9)
  1. TIOTROPIO BROMURO [Concomitant]
     Dosage: 1 DOSAGE FORMS DAILY;
     Route: 055
  2. ALLOPURINOL. [Suspect]
     Active Substance: ALLOPURINOL
     Indication: HYPERURICAEMIA
     Dosage: 75 MILLIGRAM DAILY;
     Route: 048
     Dates: end: 20130401
  3. VOLTAREN [Concomitant]
     Active Substance: DICLOFENAC SODIUM
     Indication: MUSCULOSKELETAL PAIN
  4. FUROSEMIDE. [Concomitant]
     Active Substance: FUROSEMIDE
     Dosage: 100 MILLIGRAM DAILY;
     Route: 048
  5. SIMVASTATIN. [Suspect]
     Active Substance: SIMVASTATIN
     Indication: HYPERCHOLESTEROLAEMIA
     Dosage: 40 MILLIGRAM DAILY;
     Route: 048
     Dates: start: 20130101, end: 20130401
  6. ASPIRIN. [Concomitant]
     Active Substance: ASPIRIN
     Dosage: 100 MILLIGRAM DAILY;
     Route: 048
  7. TELMISARTAN. [Concomitant]
     Active Substance: TELMISARTAN
     Dosage: 80 MILLIGRAM DAILY;
     Route: 048
  8. SALMETEROLO/FLUTICASONE [Concomitant]
     Dosage: 2 DOSAGE FORMS DAILY; SALMETROL 50/FLUTICASONE 500MCG
     Route: 055
  9. TELMISARTAN. [Concomitant]
     Active Substance: TELMISARTAN
     Dosage: 80 MILLIGRAM DAILY;
     Route: 048

REACTIONS (5)
  - Metabolic acidosis [Unknown]
  - Cardio-respiratory arrest [Fatal]
  - Haemodynamic instability [Fatal]
  - Rhabdomyolysis [Unknown]
  - Acute kidney injury [Fatal]

NARRATIVE: CASE EVENT DATE: 20130312
